FAERS Safety Report 5960505-9 (Version None)
Quarter: 2008Q4

REPORT INFORMATION
  Report Type: 
  Country: None (occurrence: None)
  Receive Date: 20081120
  Receipt Date: 20080102
  Transmission Date: 20090506
  Serious: No
  Sender: FDA-Public Use
  Company Number: US-ABBOTT-08P-163-0432082-00

PATIENT
  Sex: Female
  Weight: 65.376 kg

DRUGS (2)
  1. BIAXIN [Suspect]
     Indication: BRONCHITIS
     Route: 048
     Dates: start: 20071224, end: 20071225
  2. PANTOPRAZOLE SODIUM [Concomitant]
     Indication: BARRETT'S OESOPHAGUS
     Route: 048
     Dates: start: 20071001

REACTIONS (2)
  - RASH GENERALISED [None]
  - SWELLING FACE [None]
